FAERS Safety Report 6895138-3 (Version None)
Quarter: 2010Q3

REPORT INFORMATION
  Report Type: 
  Country: None (occurrence: None)
  Receive Date: 20100802
  Receipt Date: 20100726
  Transmission Date: 20110219
  Serious: Yes (Other)
  Sender: FDA-Public Use
  Company Number: GB-B.I. PHARMACEUTICALS,INC./RIDGEFIELD-2010-UK-00709UK

PATIENT
  Age: 73 Year
  Weight: 45 kg

DRUGS (13)
  1. TIOTROPIUM (00015/0190/A) [Suspect]
     Indication: CHRONIC OBSTRUCTIVE PULMONARY DISEASE
     Route: 055
     Dates: start: 20100630, end: 20100703
  2. ALENDRONIC ACID [Concomitant]
     Indication: ARTHRITIS
     Dosage: 10 MG
     Dates: start: 20090323
  3. AVAMYS [Concomitant]
     Indication: HYPERSENSITIVITY
     Route: 055
     Dates: start: 20090801
  4. CALCICHEW [Concomitant]
     Indication: ARTHRITIS
     Dosage: 1 DF 1/1 DAYS.
     Route: 048
     Dates: start: 20090301
  5. CARBOCISTEINE [Concomitant]
     Indication: CHRONIC OBSTRUCTIVE PULMONARY DISEASE
     Dosage: 1000 MG
     Route: 048
     Dates: start: 20091201
  6. CLOPIDOGREL [Concomitant]
     Indication: HYPERTENSION
     Route: 048
     Dates: start: 20080101
  7. DEPONIT/NITROSIV [Concomitant]
     Indication: ARTHRITIS
     Dosage: 10 MG
     Route: 062
     Dates: start: 19910101
  8. LORATADINE [Concomitant]
     Indication: HYPERSENSITIVITY
     Dosage: 10 MG
     Route: 048
     Dates: start: 20090708
  9. OXYTETRACYCLINE [Concomitant]
     Indication: LOWER RESPIRATORY TRACT INFECTION
     Route: 048
     Dates: start: 20100520, end: 20100527
  10. PREDNISOLONE [Concomitant]
     Indication: ARTHRITIS
     Dosage: 2.5 MG
     Route: 048
     Dates: start: 20090712
  11. SERETIDE [Concomitant]
     Indication: CHRONIC OBSTRUCTIVE PULMONARY DISEASE
     Dosage: 1000 MCG
     Route: 055
     Dates: start: 20050101
  12. UNIVER [Concomitant]
     Indication: HYPERTENSION
     Route: 048
     Dates: start: 19930101
  13. VENTOLIN [Concomitant]
     Indication: CHRONIC OBSTRUCTIVE PULMONARY DISEASE
     Route: 055
     Dates: start: 20080101

REACTIONS (3)
  - ABDOMINAL PAIN LOWER [None]
  - NAUSEA [None]
  - VERTIGO [None]
